FAERS Safety Report 8239061-0 (Version None)
Quarter: 2012Q1

REPORT INFORMATION
  Report Type: 
  Country: None (occurrence: None)
  Receive Date: 20120327
  Receipt Date: 20120322
  Transmission Date: 20120608
  Serious: Yes (Hospitalization, Other)
  Sender: FDA-Public Use
  Company Number: US-MERCK-1102USA01704

PATIENT
  Age: 69 Year
  Sex: Female
  Weight: 65 kg

DRUGS (7)
  1. FOSAMAX [Suspect]
     Route: 048
     Dates: start: 19950101, end: 20040514
  2. ONE-A-DAY ESSENTIAL VITAMINS [Concomitant]
     Route: 065
     Dates: start: 19950101
  3. RECLAST [Suspect]
     Route: 065
     Dates: start: 20070101, end: 20090801
  4. FOSAMAX [Suspect]
     Indication: OSTEOPOROSIS PROPHYLAXIS
     Route: 048
     Dates: start: 20040515, end: 20050614
  5. FOSAMAX [Suspect]
     Indication: OSTEOPOROSIS
     Route: 048
     Dates: start: 20040515, end: 20050614
  6. FOSAMAX [Suspect]
     Route: 048
     Dates: start: 19950101, end: 20040514
  7. CALCIUM (UNSPECIFIED) [Concomitant]
     Route: 065
     Dates: start: 19950101

REACTIONS (30)
  - DRUG INEFFECTIVE [None]
  - CATARACT [None]
  - ATELECTASIS [None]
  - SPINAL COMPRESSION FRACTURE [None]
  - BONE LOSS [None]
  - FALL [None]
  - TRIGGER FINGER [None]
  - AORTIC ARTERIOSCLEROSIS [None]
  - BURSITIS [None]
  - ARTHROPATHY [None]
  - TENOSYNOVITIS [None]
  - CATARACT NUCLEAR [None]
  - THYROID DISORDER [None]
  - FEMUR FRACTURE [None]
  - SENSITIVITY OF TEETH [None]
  - RIB FRACTURE [None]
  - DYSPHONIA [None]
  - OSTEOPOROSIS [None]
  - APHTHOUS STOMATITIS [None]
  - COLONIC POLYP [None]
  - HYPERTENSION [None]
  - TOOTH FRACTURE [None]
  - SKIN DISORDER [None]
  - BREAST CANCER [None]
  - BRONCHITIS [None]
  - HAND FRACTURE [None]
  - TRANSIENT ISCHAEMIC ATTACK [None]
  - CONTUSION [None]
  - HAEMORRHOIDS [None]
  - CALCIUM DEFICIENCY [None]
